FAERS Safety Report 10638667 (Version 1)
Quarter: 2014Q4

REPORT INFORMATION
  Report Type: Spontaneous
  Country: US (occurrence: None)
  Receive Date: 20141205
  Receipt Date: 20141205
  Transmission Date: 20150529
  Serious: Yes (Hospitalization)
  Sender: FDA-Public Use
  Company Number: None

PATIENT
  Age: 78 Year
  Sex: Male
  Weight: 84 kg

DRUGS (8)
  1. ZOCOR [Concomitant]
     Active Substance: SIMVASTATIN
  2. LISINOPRIL. [Concomitant]
     Active Substance: LISINOPRIL
  3. REMERON [Concomitant]
     Active Substance: MIRTAZAPINE
  4. TRAZODONE [Concomitant]
     Active Substance: TRAZODONE HYDROCHLORIDE
  5. NORTRIPLYLINE [Concomitant]
  6. TICE BCG [Suspect]
     Active Substance: BACILLUS CALMETTE-GUERIN SUBSTRAIN TICE LIVE ANTIGEN
     Dosage: PT DID NOT NEED DOSE MODIFICATION AS PNEUMONIA IS NOT RELATED TO BCG.  PT WILL BE DELAYED 2 WEEKS IN GETTING BCG AS WAS HOSPITALIZED AND GETTING ORAL ANTIBIOTICS AT HOME
     Dates: end: 20140529
  7. NORCO [Concomitant]
     Active Substance: ACETAMINOPHEN\HYDROCODONE BITARTRATE
  8. FLOMAX [Concomitant]
     Active Substance: TAMSULOSIN HYDROCHLORIDE

REACTIONS (7)
  - Cough [None]
  - Dyspnoea [None]
  - Sputum discoloured [None]
  - Bacterial test positive [None]
  - Lung infiltration [None]
  - Pneumonia [None]
  - Feeling abnormal [None]

NARRATIVE: CASE EVENT DATE: 20140603
